FAERS Safety Report 14271533 (Version 2)
Quarter: 2017Q4

REPORT INFORMATION
  Report Type: Spontaneous
  Country: US (occurrence: US)
  Receive Date: 20171211
  Receipt Date: 20171219
  Transmission Date: 20180321
  Serious: Yes (Life-Threatening, Hospitalization, Other)
  Sender: FDA-Public Use
  Company Number: US-MYLANLABS-2017M1076580

PATIENT
  Age: 47 Year
  Sex: Male

DRUGS (1)
  1. DILTIAZEM. [Suspect]
     Active Substance: DILTIAZEM
     Indication: PRODUCT USED FOR UNKNOWN INDICATION
     Dosage: UNK
     Route: 065

REACTIONS (8)
  - Hyperglycaemia [Unknown]
  - Intentional overdose [Unknown]
  - Metabolic acidosis [Unknown]
  - Acute respiratory distress syndrome [Unknown]
  - Toxicity to various agents [Unknown]
  - Bradycardia [Unknown]
  - Suicide attempt [Unknown]
  - Hypotension [Unknown]
